FAERS Safety Report 11063032 (Version 2)
Quarter: 2015Q3

REPORT INFORMATION
  Report Type: Spontaneous
  Country: IT (occurrence: IT)
  Receive Date: 20150424
  Receipt Date: 20150918
  Transmission Date: 20151125
  Serious: Yes (Life-Threatening)
  Sender: FDA-Public Use
  Company Number: IT-SA-2015SA052347

PATIENT
  Age: 77 Year
  Sex: Male

DRUGS (12)
  1. MITTOVAL [Concomitant]
     Active Substance: ALFUZOSIN HYDROCHLORIDE
     Dosage: FORM: PROLONGED RELEASE TABLET AND STRENGTH: 10?MG
  2. LUVION [Concomitant]
     Active Substance: CANRENONE
     Dosage: STRENGTH:50 MG
  3. LEVOFLOXACIN. [Interacting]
     Active Substance: LEVOFLOXACIN
     Indication: DIABETIC FOOT INFECTION
     Route: 048
     Dates: start: 20150315, end: 20150323
  4. AVODART [Concomitant]
     Active Substance: DUTASTERIDE
     Dosage: STRENGTH: 0.5 MG
  5. AMIODAR [Concomitant]
     Active Substance: AMIODARONE
     Dosage: STRENGTH: 200 MG
  6. DILATREND [Concomitant]
     Active Substance: CARVEDILOL
     Dosage: STRENGTH: 25 MG
  7. LEVEMIR [Concomitant]
     Active Substance: INSULIN DETEMIR
     Dosage: STRENGTH: 100 IU/ML
  8. RIFADIN [Suspect]
     Active Substance: RIFAMPIN
     Indication: DIABETIC FOOT INFECTION
     Route: 048
     Dates: start: 20150315, end: 20150323
  9. COUMADIN [Interacting]
     Active Substance: WARFARIN SODIUM
     Indication: CEREBROVASCULAR ACCIDENT PROPHYLAXIS
     Dosage: 5MG DIVISIBLE TABLETS
     Route: 048
     Dates: start: 20090923, end: 20150322
  10. LASIX [Concomitant]
     Active Substance: FUROSEMIDE
     Dosage: STRENGTH: 25 MG
  11. TOTALIP [Concomitant]
     Active Substance: ATORVASTATIN
     Dosage: STRENGTH: 20 MG
  12. NOVORAPID [Concomitant]
     Active Substance: INSULIN ASPART
     Dosage: STRENGTH:100 IU/ML

REACTIONS (2)
  - International normalised ratio increased [Recovered/Resolved]
  - Drug interaction [Unknown]

NARRATIVE: CASE EVENT DATE: 20150323
